FAERS Safety Report 5242492-4 (Version None)
Quarter: 2007Q1

REPORT INFORMATION
  Report Type: 
  Country: None (occurrence: None)
  Receive Date: 20070221
  Receipt Date: 20070215
  Transmission Date: 20070707
  Serious: Yes (Death)
  Sender: FDA-Public Use
  Company Number: LB-AVENTIS-200710756EU

PATIENT
  Age: 82 Year
  Sex: Male
  Weight: 60 kg

DRUGS (3)
  1. LOVENOX [Suspect]
     Indication: EMBOLISM
     Route: 058
     Dates: start: 20070112, end: 20070202
  2. TRITACE [Concomitant]
     Indication: HYPERTENSION
     Route: 048
     Dates: end: 20070202
  3. ASPIRIN [Concomitant]
     Indication: ANTIPLATELET THERAPY
     Route: 048
     Dates: end: 20070202

REACTIONS (2)
  - BRAIN OEDEMA [None]
  - PNEUMONIA ASPIRATION [None]
